FAERS Safety Report 8539236-7 (Version None)
Quarter: 2012Q3

REPORT INFORMATION
  Report Type: 
  Country: None (occurrence: None)
  Receive Date: 20120726
  Receipt Date: 20120717
  Transmission Date: 20120928
  Serious: Yes (Other)
  Sender: FDA-Public Use
  Company Number: CA-JNJFOC-20110509717

PATIENT
  Sex: Female
  Weight: 65 kg

DRUGS (12)
  1. CALCIUM CARBONATE [Concomitant]
     Indication: MINERAL SUPPLEMENTATION
     Route: 048
  2. UNKNOWN MEDICATION [Concomitant]
     Route: 065
  3. REMICADE [Suspect]
     Route: 042
     Dates: start: 20111115, end: 20111115
  4. DICETEL [Concomitant]
     Indication: IRRITABLE BOWEL SYNDROME
     Dosage: AS AND WHEN REQUIRED
     Route: 065
  5. REMICADE [Suspect]
     Route: 042
     Dates: start: 20120110, end: 20120110
  6. ASCORBIC ACID [Concomitant]
     Route: 048
  7. LACTOBACILLUS NOS [Concomitant]
     Route: 065
  8. REMICADE [Suspect]
     Indication: COLITIS ULCERATIVE
     Route: 042
     Dates: start: 20100803
  9. REMICADE [Suspect]
     Route: 042
     Dates: start: 20110204, end: 20110204
  10. IMURAN [Concomitant]
     Route: 048
  11. CALCIUM CARBONATE [Concomitant]
     Route: 065
  12. FERROUS SULFATE TAB [Concomitant]
     Route: 048

REACTIONS (6)
  - SMEAR CERVIX ABNORMAL [None]
  - NAIL INFECTION [None]
  - BODY TEMPERATURE INCREASED [None]
  - INFLUENZA [None]
  - COUGH [None]
  - COLPOSCOPY ABNORMAL [None]
